FAERS Safety Report 13902443 (Version 3)
Quarter: 2017Q4

REPORT INFORMATION
  Report Type: Spontaneous
  Country: FR (occurrence: FR)
  Receive Date: 20170824
  Receipt Date: 20171106
  Transmission Date: 20180320
  Serious: Yes (Death, Hospitalization)
  Sender: FDA-Public Use
  Company Number: FR-CIPLA LTD.-2017FR14768

PATIENT

DRUGS (7)
  1. HYDROXYZINE [Suspect]
     Active Substance: HYDROXYZINE HYDROCHLORIDE
     Dosage: 25 MG, 28 TABLETS TOTAL
     Route: 048
  2. CITALOPRAM [Suspect]
     Active Substance: CITALOPRAM HYDROBROMIDE
     Dosage: UNK
     Route: 065
  3. LYSANXIA [Suspect]
     Active Substance: PRAZEPAM
     Dosage: 10 MG, 42 TABLETS TOTAL
     Route: 048
  4. ESCITALOPRAM [Suspect]
     Active Substance: ESCITALOPRAM OXALATE
     Dosage: 10 MG, 28 TABLETS TOTAL
     Route: 048
  5. SEVIKAR [Suspect]
     Active Substance: AMLODIPINE BESYLATE\OLMESARTAN MEDOXOMIL
     Dosage: 129 TABLETS, 1.29 G OF AMLODIPINE AND 5.16 G OF OLMESARTAN
     Route: 048
  6. ZOLPIDEM TARTARATE [Suspect]
     Active Substance: ZOLPIDEM TARTRATE
     Dosage: UNK
     Route: 065
  7. NORDAZEPAM [Suspect]
     Active Substance: NORDAZEPAM
     Dosage: UNK
     Route: 065

REACTIONS (11)
  - Intentional overdose [Fatal]
  - Multiple organ dysfunction syndrome [Fatal]
  - Hyperlactacidaemia [Unknown]
  - Shock [Fatal]
  - Cardiogenic shock [Fatal]
  - Coma [Unknown]
  - Toxicity to various agents [Fatal]
  - Skin necrosis [Unknown]
  - Bezoar [Recovered/Resolved]
  - Gastrointestinal ischaemia [Fatal]
  - Metabolic acidosis [Unknown]
